FAERS Safety Report 18197254 (Version 1)
Quarter: 2020Q3

REPORT INFORMATION
  Report Type: Spontaneous
  Country: US (occurrence: US)
  Receive Date: 20200826
  Receipt Date: 20200826
  Transmission Date: 20201103
  Serious: Yes (Hospitalization, Other)
  Sender: FDA-Public Use
  Company Number: US-PFIZER INC-2020319038

PATIENT
  Age: 7 Year
  Sex: Male

DRUGS (3)
  1. TETRACYCLINE HCL [Suspect]
     Active Substance: TETRACYCLINE HYDROCHLORIDE
     Indication: MYRINGITIS
     Dosage: 250 MG, 4X/DAY
     Dates: start: 19700218, end: 19700224
  2. TETRACYCLINE HCL [Suspect]
     Active Substance: TETRACYCLINE HYDROCHLORIDE
     Indication: EAR PAIN
     Dosage: 1 G
  3. MYSTECLIN F [Suspect]
     Active Substance: AMPHOTERICIN B\TETRACYCLINE
     Indication: EAR PAIN
     Dosage: UNK (MIXTURE OF TETRACYCLINE, 250 MG, AND AMPHOTERICIN B, 50 MG)
     Dates: start: 19700301, end: 19700303

REACTIONS (5)
  - Retinal haemorrhage [Recovering/Resolving]
  - Product use issue [Unknown]
  - Papilloedema [Recovering/Resolving]
  - Idiopathic intracranial hypertension [Recovered/Resolved]
  - Off label use [Unknown]

NARRATIVE: CASE EVENT DATE: 19700303
